FAERS Safety Report 4915150-0 (Version None)
Quarter: 2006Q1

REPORT INFORMATION
  Report Type: 
  Country: None (occurrence: None)
  Receive Date: 20060216
  Receipt Date: 20060216
  Transmission Date: 20060701
  Serious: Yes (Hospitalization)
  Sender: FDA-Public Use
  Company Number: None

PATIENT
  Sex: Female
  Weight: 72.5755 kg

DRUGS (10)
  1. LASIX [Suspect]
     Indication: HYPERTENSION
     Dosage: 40 MG PO QD
     Route: 048
  2. TORSEMIDE 20MG PO BID [Suspect]
     Indication: HYPERTENSION
     Dosage: 20 MG PO BID
     Route: 048
  3. METOLAZONE [Suspect]
     Indication: HYPERTENSION
     Dosage: 5MG PO BID
     Route: 048
  4. DARVOCET-N 50 [Concomitant]
  5. COLACE [Concomitant]
  6. DIGOXIN [Concomitant]
  7. COUMADIN [Concomitant]
  8. POTASSIUM [Concomitant]
  9. TOPROL-XL [Concomitant]
  10. SPIRONOLACTONE [Concomitant]

REACTIONS (1)
  - HYPOKALAEMIA [None]
